FAERS Safety Report 14142845 (Version 1)
Quarter: 2017Q4

REPORT INFORMATION
  Report Type: Spontaneous
  Country: US (occurrence: US)
  Receive Date: 20171030
  Receipt Date: 20171030
  Transmission Date: 20180321
  Serious: No
  Sender: FDA-Public Use
  Company Number: US-BAYER-2017-209280

PATIENT
  Sex: Female

DRUGS (1)
  1. MIRALAX [Suspect]
     Active Substance: POLYETHYLENE GLYCOL 3350
     Indication: GASTROINTESTINAL DISORDER
     Dosage: UNK ONE DOSE DAILY FOR SEVEN DAYS
     Route: 048
     Dates: start: 201710, end: 201710

REACTIONS (2)
  - Expired product administered [Unknown]
  - Drug ineffective [Unknown]

NARRATIVE: CASE EVENT DATE: 201710
